FAERS Safety Report 18407951 (Version 2)
Quarter: 2020Q4

REPORT INFORMATION
  Report Type: Report from Study
  Country: JP (occurrence: JP)
  Receive Date: 20201021
  Receipt Date: 20201126
  Transmission Date: 20210114
  Serious: Yes (Life-Threatening, Other)
  Sender: FDA-Public Use
  Company Number: JP-AUROBINDO-AUR-APL-2020-053324

PATIENT
  Age: 61 Year
  Sex: Male
  Weight: 54.4 kg

DRUGS (10)
  1. FOLOTYN [Suspect]
     Active Substance: PRALATREXATE
     Dosage: 25.4 MILLIGRAM/SQ. METER
     Route: 065
     Dates: start: 20200721
  2. FOLOTYN [Suspect]
     Active Substance: PRALATREXATE
     Dosage: 25.4 MILLIGRAM/SQ. METER
     Route: 042
     Dates: start: 20200918, end: 20200923
  3. VITAMIN B12 [Concomitant]
     Active Substance: CYANOCOBALAMIN
     Indication: PROPHYLAXIS
     Dosage: UNK
     Route: 030
     Dates: end: 20200818
  4. FOLOTYN [Suspect]
     Active Substance: PRALATREXATE
     Dosage: 25.4 MILLIGRAM/SQ. METER
     Route: 042
     Dates: start: 20200903
  5. FOLOTYN [Suspect]
     Active Substance: PRALATREXATE
     Indication: PERIPHERAL T-CELL LYMPHOMA UNSPECIFIED
     Dosage: 25.4 MILLIGRAM/SQ. METER, DAILY
     Route: 042
     Dates: start: 20200707
  6. FOLOTYN [Suspect]
     Active Substance: PRALATREXATE
     Dosage: 25.4 MILLIGRAM/SQ. METER
     Route: 042
     Dates: start: 20200714
  7. FOLOTYN [Suspect]
     Active Substance: PRALATREXATE
     Dosage: 25.4 MILLIGRAM/SQ. METER
     Route: 042
     Dates: start: 20200811
  8. FOLOTYN [Suspect]
     Active Substance: PRALATREXATE
     Dosage: 25.4 MILLIGRAM/SQ. METER
     Route: 042
     Dates: start: 20200818
  9. FOLOTYN [Suspect]
     Active Substance: PRALATREXATE
     Dosage: 25.4 MILLIGRAM/SQ. METER
     Route: 042
     Dates: start: 20200731
  10. FOLIC ACID. [Concomitant]
     Active Substance: FOLIC ACID
     Indication: PROPHYLAXIS
     Dosage: UNK
     Route: 048
     Dates: end: 20201013

REACTIONS (8)
  - Hepatic function abnormal [Recovering/Resolving]
  - Fungal skin infection [Recovered/Resolved]
  - Oral herpes [Recovered/Resolved]
  - Platelet count decreased [Recovered/Resolved]
  - Neutrophil count decreased [Recovered/Resolved]
  - Cytomegalovirus viraemia [Recovering/Resolving]
  - Stomatitis [Recovered/Resolved]
  - Therapeutic response decreased [Unknown]

NARRATIVE: CASE EVENT DATE: 20200721
